FAERS Safety Report 4979587-6 (Version None)
Quarter: 2006Q2

REPORT INFORMATION
  Report Type: 
  Country: None (occurrence: None)
  Receive Date: 20060418
  Receipt Date: 20060404
  Transmission Date: 20061013
  Serious: Yes (Hospitalization)
  Sender: FDA-Public Use
  Company Number: S06-FRA-01382-01

PATIENT
  Age: 55 Year
  Sex: Male

DRUGS (1)
  1. ESCITALOPRAM OXALATE [Suspect]

REACTIONS (3)
  - AGGRESSION [None]
  - DRUG WITHDRAWAL SYNDROME [None]
  - PHYSICAL ASSAULT [None]
